FAERS Safety Report 6240075-0 (Version None)
Quarter: 2009Q2

REPORT INFORMATION
  Report Type: 
  Country: None (occurrence: None)
  Receive Date: 20090623
  Receipt Date: 20090611
  Transmission Date: 20091009
  Serious: Yes (Other)
  Sender: FDA-Public Use
  Company Number: GB-RANBAXY-2009RR-24873

PATIENT
  Age: 5 Year
  Sex: Male

DRUGS (5)
  1. IBUPROFEN [Suspect]
     Indication: PYREXIA
     Dosage: 100 MG, SINGLE
  2. AZATHIOPRINE [Concomitant]
  3. CYCLOSPORINE [Concomitant]
  4. PARACETAMOL [Concomitant]
     Indication: PYREXIA
  5. PREDNISOLONE [Concomitant]

REACTIONS (1)
  - RENAL FAILURE ACUTE [None]
